FAERS Safety Report 6357628-1 (Version None)
Quarter: 2009Q3

REPORT INFORMATION
  Report Type: 
  Country: None (occurrence: None)
  Receive Date: 20090911
  Receipt Date: 20090903
  Transmission Date: 20100115
  Serious: Yes (Death)
  Sender: FDA-Public Use
  Company Number: ALK_00972_2009

PATIENT

DRUGS (1)
  1. VIVITROL [Suspect]
     Dosage: INTRAMUSCULAR
     Route: 030

REACTIONS (1)
  - DEATH [None]
